FAERS Safety Report 9172007 (Version 1)
Quarter: 2013Q1

REPORT INFORMATION
  Report Type: Spontaneous
  Country: US (occurrence: US)
  Receive Date: 20130319
  Receipt Date: 20130319
  Transmission Date: 20140127
  Serious: Yes (Other)
  Sender: FDA-Public Use
  Company Number: US-009507513-1303USA007988

PATIENT
  Age: 35 None
  Sex: Female

DRUGS (3)
  1. PEGINTRON [Suspect]
     Indication: HEPATITIS C
     Dosage: 0.5 UNK, QW
     Route: 058
     Dates: start: 20130220
  2. RIBASPHERE [Suspect]
     Indication: HEPATITIS C
     Dosage: 400 MG, QD
     Dates: start: 20130220
  3. RIBASPHERE [Suspect]
     Dosage: 400 MG, UNK
     Dates: start: 20130312

REACTIONS (11)
  - Dehydration [Unknown]
  - Gait disturbance [Unknown]
  - Infection [Unknown]
  - Arthralgia [Unknown]
  - Insomnia [Unknown]
  - Pyrexia [Unknown]
  - Myalgia [Unknown]
  - Nausea [Unknown]
  - Asthenia [Unknown]
  - Nausea [Unknown]
  - Headache [Unknown]
